FAERS Safety Report 11204000 (Version 2)
Quarter: 2018Q3

REPORT INFORMATION
  Report Type: Spontaneous
  Country: US (occurrence: US)
  Receive Date: 20150619
  Receipt Date: 20180919
  Transmission Date: 20181010
  Serious: No
  Sender: FDA-Public Use
  Company Number: US-CELGENEUS-USA-2015051864

PATIENT
  Age: 63 Year
  Sex: Male

DRUGS (1)
  1. OTEZLA [Suspect]
     Active Substance: APREMILAST
     Indication: PSORIASIS
     Dosage: 60 MILLIGRAM
     Route: 048
     Dates: start: 20150419, end: 20150501

REACTIONS (3)
  - Headache [Recovered/Resolved]
  - Frequent bowel movements [Recovered/Resolved]
  - Laziness [Recovered/Resolved]

NARRATIVE: CASE EVENT DATE: 20150419
